FAERS Safety Report 13515587 (Version 4)
Quarter: 2018Q3

REPORT INFORMATION
  Report Type: Spontaneous
  Country: DE (occurrence: DE)
  Receive Date: 20170504
  Receipt Date: 20180719
  Transmission Date: 20181010
  Serious: Yes (Other)
  Sender: FDA-Public Use
  Company Number: DE-BAUSCH-BL-2017-012541

PATIENT
  Sex: Female

DRUGS (5)
  1. FLOXAL [Suspect]
     Active Substance: OFLOXACIN
     Indication: POSTOPERATIVE CARE
     Dosage: SINGLE DOSE VIAL
     Route: 065
     Dates: start: 20170421, end: 20170503
  2. FALITHROM [Concomitant]
     Active Substance: PHENPROCOUMON
     Indication: PRODUCT USED FOR UNKNOWN INDICATION
     Route: 065
  3. DEXA EDO [Suspect]
     Active Substance: DEXAMETHASONE SODIUM PHOSPHATE
     Indication: POSTOPERATIVE CARE
     Route: 065
     Dates: start: 20170421, end: 20170503
  4. NEBIVOLOL. [Concomitant]
     Active Substance: NEBIVOLOL
     Indication: PRODUCT USED FOR UNKNOWN INDICATION
     Route: 065
  5. VIDISIC EDO AUGENGEL [Suspect]
     Active Substance: CARBOMER
     Indication: PRODUCT USED FOR UNKNOWN INDICATION
     Route: 065
     Dates: end: 20170503

REACTIONS (9)
  - Headache [Unknown]
  - Hypersensitivity [Unknown]
  - Glaucoma [Unknown]
  - Blindness transient [Unknown]
  - Nausea [Unknown]
  - Gait inability [Unknown]
  - Visual impairment [Unknown]
  - Feeling hot [Unknown]
  - Fatigue [Unknown]
